FAERS Safety Report 4380124-8 (Version None)
Quarter: 2004Q2

REPORT INFORMATION
  Report Type: 
  Country: None (occurrence: None)
  Receive Date: 20040614
  Receipt Date: 20040309
  Transmission Date: 20050107
  Serious: No
  Sender: FDA-Public Use
  Company Number: M04-341-067

PATIENT
  Age: 74 Year
  Sex: Male

DRUGS (12)
  1. VELCADE [Suspect]
     Indication: MULTIPLE MYELOMA
     Dosage: 1.3 MG/M2: INTRAVENOUS BOLUS
     Route: 040
     Dates: start: 20040120, end: 20040305
  2. ACETAMINOPHEN [Concomitant]
  3. CALCIUM [Concomitant]
  4. DEXAMETHASONE [Concomitant]
  5. DOCUSATE [Concomitant]
  6. EPOETIN ALFA [Concomitant]
  7. METOPROLOL TARTRATE [Concomitant]
  8. NITROGLYCERIN COMP./NET/ [Concomitant]
  9. OXYCODONE [Concomitant]
  10. PROCHLORPHERAZINE EDISYLATE [Concomitant]
  11. SENNA [Concomitant]
  12. SEVELAMER [Concomitant]

REACTIONS (1)
  - SKIN HYPERPIGMENTATION [None]
